FAERS Safety Report 4396042-5 (Version None)
Quarter: 2004Q3

REPORT INFORMATION
  Report Type: 
  Country: None (occurrence: None)
  Receive Date: 20040708
  Receipt Date: 20040625
  Transmission Date: 20050211
  Serious: Yes (Other)
  Sender: FDA-Public Use
  Company Number: 2004029944

PATIENT
  Age: 49 Year
  Sex: Female
  Weight: 79.3795 kg

DRUGS (2)
  1. NEURONTIN [Suspect]
     Indication: DEPRESSION
     Dosage: THREE TIMES A DAY, ORAL
     Route: 048
     Dates: start: 19990101, end: 19990101
  2. CYCLOBENZAPRINE HYDROCHLORIDE [Concomitant]

REACTIONS (8)
  - ACTIVITIES OF DAILY LIVING IMPAIRED [None]
  - CATATONIA [None]
  - DRY MOUTH [None]
  - DYSPHONIA [None]
  - EYE ROLLING [None]
  - IMPAIRED DRIVING ABILITY [None]
  - MEMORY IMPAIRMENT [None]
  - SOMNOLENCE [None]
